FAERS Safety Report 4746776-5 (Version None)
Quarter: 2005Q3

REPORT INFORMATION
  Report Type: 
  Country: None (occurrence: None)
  Receive Date: 20050815
  Receipt Date: 20050805
  Transmission Date: 20060218
  Serious: Yes (Hospitalization)
  Sender: FDA-Public Use
  Company Number: 200512033GDS

PATIENT
  Age: 61 Year
  Sex: Female

DRUGS (8)
  1. MOXIFLOXACIN [Suspect]
     Dosage: 400 MG, QD, ORAL
     Route: 048
     Dates: end: 20050311
  2. BECLOMETHASONE DIPROPIONATE [Suspect]
     Dosage: RESPIRATORY INHALATION
     Route: 055
     Dates: start: 20050301, end: 20050318
  3. FORMOTEROL [Concomitant]
  4. COLECALCIFEROL [Concomitant]
  5. DIPROPHOS [Concomitant]
  6. CELESTON [Concomitant]
  7. DIPIPERONE [Concomitant]
  8. LEPONEX [Concomitant]

REACTIONS (14)
  - ADRENOCORTICAL INSUFFICIENCY ACUTE [None]
  - ALCOHOL WITHDRAWAL SYNDROME [None]
  - ARTHROPOD BITE [None]
  - CIRCULATORY COLLAPSE [None]
  - DISSEMINATED INTRAVASCULAR COAGULATION [None]
  - EOSINOPHILIA [None]
  - HYPERSENSITIVITY [None]
  - HYPOTENSION [None]
  - INFLAMMATION [None]
  - METABOLIC ACIDOSIS [None]
  - RENAL FAILURE [None]
  - RESPIRATORY FAILURE [None]
  - SEPSIS [None]
  - THROMBOCYTOPENIA [None]
